FAERS Safety Report 23347745 (Version 1)
Quarter: 2023Q4

REPORT INFORMATION
  Report Type: Spontaneous
  Country: PR (occurrence: US)
  Receive Date: 20231228
  Receipt Date: 20231228
  Transmission Date: 20240110
  Serious: No
  Sender: FDA-Public Use
  Company Number: PR-PFIZER INC-202300449528

PATIENT
  Age: 69 Year
  Sex: Female
  Weight: 108.86 kg

DRUGS (3)
  1. PAXLOVID [Suspect]
     Active Substance: NIRMATRELVIR\RITONAVIR
     Indication: COVID-19 treatment
     Dosage: [NIRMATRELVIR 300 MG]/[RITONAVIR 100 MG]; 2X/DAY
     Dates: start: 20231218
  2. ROBITUSSIN 12 HOUR COUGH + MUCUS RELIEF [Concomitant]
     Indication: Cough
     Dosage: UNK
  3. WALGREENS COLD AND FLU RELIEF NIGHTTIME ORIGINAL [Concomitant]
     Indication: Nasopharyngitis

REACTIONS (2)
  - Gastritis [Not Recovered/Not Resolved]
  - Abdominal pain upper [Not Recovered/Not Resolved]

NARRATIVE: CASE EVENT DATE: 20231218
